FAERS Safety Report 24721696 (Version 1)
Quarter: 2024Q4

REPORT INFORMATION
  Report Type: Spontaneous
  Country: US (occurrence: None)
  Receive Date: 20241210
  Receipt Date: 20241210
  Transmission Date: 20250114
  Serious: Yes (Hospitalization)
  Sender: Public
  Company Number: None

PATIENT
  Age: 62 Year
  Sex: Male

DRUGS (9)
  1. SKYRIZI [Suspect]
     Active Substance: RISANKIZUMAB-RZAA
     Dosage: OTHER FREQUENCY : EVERY 8 WEEKS;?
     Route: 058
     Dates: end: 20241210
  2. GABAPENTIN [Concomitant]
     Active Substance: GABAPENTIN
  3. MORPHINE SULFATE [Concomitant]
     Active Substance: MORPHINE SULFATE
  4. DULOXETINE [Concomitant]
     Active Substance: DULOXETINE
  5. TAMSULOSIN [Concomitant]
     Active Substance: TAMSULOSIN
  6. BUDESONIDE [Concomitant]
     Active Substance: BUDESONIDE
  7. QUETIAPINE [Concomitant]
     Active Substance: QUETIAPINE
  8. FLUTICASONE [Concomitant]
     Active Substance: FLUTICASONE
  9. ESOMEPRAZOLE [Concomitant]
     Active Substance: ESOMEPRAZOLE

REACTIONS (1)
  - Infection [None]

NARRATIVE: CASE EVENT DATE: 20240814
